FAERS Safety Report 17977079 (Version 1)
Quarter: 2020Q3

REPORT INFORMATION
  Report Type: Other
  Country: IT (occurrence: IT)
  Receive Date: 20200702
  Receipt Date: 20200702
  Transmission Date: 20201103
  Serious: Yes (Hospitalization)
  Sender: FDA-Public Use
  Company Number: IT-INCYTE CORPORATION-2020IN005944

PATIENT

DRUGS (6)
  1. CLEXANE [Concomitant]
     Active Substance: ENOXAPARIN SODIUM
     Indication: FIBRIN D DIMER INCREASED
     Dosage: 4000 KIU, QD
     Route: 065
     Dates: start: 20200402, end: 20200403
  2. CLEXANE T [Concomitant]
     Active Substance: ENOXAPARIN SODIUM
     Indication: FIBRIN D DIMER INCREASED
     Dosage: 8000 KIU, QD
     Route: 058
     Dates: start: 20200403
  3. PLAQUENIL [Concomitant]
     Active Substance: HYDROXYCHLOROQUINE SULFATE
     Indication: COVID-19 PNEUMONIA
     Dosage: 400 MG, QD
     Route: 048
     Dates: start: 20200402
  4. JAKAVI [Suspect]
     Active Substance: RUXOLITINIB
     Indication: COVID-19 PNEUMONIA
     Dosage: 20 MG, QD
     Route: 048
     Dates: start: 20200405, end: 20200419
  5. BASSADO [DOXYCYCLINE HYDROCHLORIDE] [Concomitant]
     Active Substance: DOXYCYCLINE HYDROCHLORIDE
     Indication: COVID-19 PNEUMONIA
     Dosage: 200 MG, QD
     Route: 048
     Dates: start: 20200401
  6. GLAZIDIM [Concomitant]
     Active Substance: CEFTAZIDIME
     Indication: COVID-19 PNEUMONIA
     Dosage: 6 UG
     Route: 042
     Dates: start: 20200401

REACTIONS (4)
  - Thrombocytopenia [Recovered/Resolved]
  - Platelet disorder [Recovered/Resolved]
  - Off label use [Recovered/Resolved]
  - Thrombocytosis [Recovered/Resolved]

NARRATIVE: CASE EVENT DATE: 20200430
